FAERS Safety Report 17143572 (Version 1)
Quarter: 2019Q4

REPORT INFORMATION
  Report Type: Report from Study
  Country: US (occurrence: US)
  Receive Date: 20191211
  Receipt Date: 20191211
  Transmission Date: 20200122
  Serious: Yes (Other)
  Sender: FDA-Public Use
  Company Number: US-BEH-2019110247

PATIENT
  Age: 52 Year
  Sex: Female
  Weight: 120.18 kg

DRUGS (2)
  1. HAEGARDA [Suspect]
     Active Substance: HUMAN C1-ESTERASE INHIBITOR
     Indication: HEREDITARY ANGIOEDEMA
     Dosage: 7000 UNK, BIW (EVERY 3 TO 4 DAYS)
     Route: 058
     Dates: start: 20190122
  2. HAEGARDA [Suspect]
     Active Substance: HUMAN C1-ESTERASE INHIBITOR
     Indication: PROPHYLAXIS

REACTIONS (6)
  - Thrombosis [Unknown]
  - Pain in extremity [Unknown]
  - Panic attack [Unknown]
  - Arthralgia [Unknown]
  - Oropharyngeal discomfort [Unknown]
  - Anxiety [Unknown]

NARRATIVE: CASE EVENT DATE: 20191202
